FAERS Safety Report 8252705-2 (Version None)
Quarter: 2012Q2

REPORT INFORMATION
  Report Type: 
  Country: None (occurrence: None)
  Receive Date: 20120402
  Receipt Date: 20111129
  Transmission Date: 20120825
  Serious: No
  Sender: FDA-Public Use
  Company Number: US-ABBOTT-11P-163-0881121-00

PATIENT
  Sex: Male
  Weight: 127.12 kg

DRUGS (2)
  1. ANDROGEL [Suspect]
     Indication: BLOOD TESTOSTERONE DECREASED
     Route: 061
  2. ALPRAZOLAM [Concomitant]
     Indication: ANXIETY

REACTIONS (3)
  - THROAT IRRITATION [None]
  - SALIVA ALTERED [None]
  - INCREASED UPPER AIRWAY SECRETION [None]
